FAERS Safety Report 4678867-1 (Version None)
Quarter: 2005Q2

REPORT INFORMATION
  Report Type: 
  Country: None (occurrence: None)
  Receive Date: 20050531
  Receipt Date: 20050516
  Transmission Date: 20051028
  Serious: Yes (Other)
  Sender: FDA-Public Use
  Company Number: 2005075887

PATIENT
  Sex: Male

DRUGS (4)
  1. ZOLOFT [Suspect]
     Indication: ILL-DEFINED DISORDER
     Dosage: 200 MG (200 MG , 1 IN 1 D),ORAL
     Route: 048
     Dates: start: 19990101
  2. LORAZEPAM [Suspect]
     Indication: ILL-DEFINED DISORDER
     Dosage: (0.5 MG AS NECESSARY), ORAL
     Route: 048
  3. WELLBUTRIN SR [Suspect]
     Indication: ILL-DEFINED DISORDER
     Dosage: (100 MG, AS NECESSARY), ORAL
     Route: 048
  4. AMBIEN [Suspect]
     Indication: ILL-DEFINED DISORDER
     Dosage: (10 MG, AS NECESSARY), ORAL
     Route: 048

REACTIONS (7)
  - ABDOMINAL PAIN [None]
  - AUTISM SPECTRUM DISORDER [None]
  - CAESAREAN SECTION [None]
  - DRUG EXPOSURE DURING PREGNANCY [None]
  - NEONATAL DISORDER [None]
  - PREGNANCY [None]
  - SMALL FOR DATES BABY [None]
